FAERS Safety Report 9814752 (Version 2)
Quarter: 2014Q1

REPORT INFORMATION
  Report Type: Spontaneous
  Country: US (occurrence: US)
  Receive Date: 20140113
  Receipt Date: 20140113
  Transmission Date: 20141002
  Serious: Yes (Life-Threatening, Hospitalization)
  Sender: FDA-Public Use
  Company Number: US-SANOFI-AVENTIS-2013SA073165

PATIENT
  Age: 53 Year
  Sex: Female

DRUGS (21)
  1. DOCETAXEL [Suspect]
     Indication: HER-2 POSITIVE BREAST CANCER
     Dosage: FORM: VIALS?50 MG/M2
     Route: 042
     Dates: start: 20091021
  2. DOCETAXEL [Suspect]
     Indication: HER-2 POSITIVE BREAST CANCER
     Dosage: FORM: VIALS?60 MG/M2
     Route: 042
  3. DOCETAXEL [Suspect]
     Indication: HER-2 POSITIVE BREAST CANCER
     Dosage: FORM: VIALS?DOSE: 50 MG/M2
     Route: 042
     Dates: start: 20100203
  4. DOCETAXEL [Suspect]
     Indication: HER-2 POSITIVE BREAST CANCER
     Dosage: FORM: VIALS, 60 MG/M2
     Route: 042
     Dates: start: 20091223
  5. CARBOPLATIN [Suspect]
     Indication: HER-2 POSITIVE BREAST CANCER
     Dosage: FORM: VIALS?DOSE: 4AUC
     Route: 042
     Dates: start: 20091021
  6. CARBOPLATIN [Suspect]
     Indication: HER-2 POSITIVE BREAST CANCER
     Dosage: FORM: VIALS?6 AUC
     Route: 042
  7. CARBOPLATIN [Suspect]
     Indication: HER-2 POSITIVE BREAST CANCER
     Dosage: FORM: VIALS?DOSE: 5 AUC
     Route: 042
     Dates: start: 20091223
  8. CARBOPLATIN [Suspect]
     Indication: HER-2 POSITIVE BREAST CANCER
     Dosage: FORM: VIALS?DOSE: 5 AUC
     Route: 042
  9. CARBOPLATIN [Suspect]
     Indication: HER-2 POSITIVE BREAST CANCER
     Dosage: FORM: VIALS?DOSE: 4 AUC
     Route: 042
     Dates: start: 20100203
  10. TRASTUZUMAB [Concomitant]
     Indication: HER-2 POSITIVE BREAST CANCER
     Dosage: FORM: VIALS?6 MG/KG
     Route: 042
     Dates: start: 20091021
  11. TRASTUZUMAB [Concomitant]
     Indication: HER-2 POSITIVE BREAST CANCER
     Dosage: FORM: VIALS?6 MG/KG
     Route: 042
     Dates: start: 20091111
  12. DITROPAN [Concomitant]
     Dates: start: 20090115
  13. HYDROCHLOROTHIAZIDE/LISINOPRIL [Concomitant]
     Dates: start: 20090723
  14. LAMISIL [Concomitant]
     Route: 061
     Dates: start: 20090519
  15. ZOFRAN [Concomitant]
     Dates: start: 20091021
  16. DEXAMETHASONE [Concomitant]
     Dates: start: 20091020
  17. VICODIN [Concomitant]
     Dosage: REPORTED DRUG: VICODIN-ACETAMENOPHEN?REPORTED TDD: 5-500 MG?DOSE REPORTED 4 TAB
     Dates: start: 20091026
  18. PEGFILGRASTIM [Concomitant]
     Dates: start: 20091203
  19. LOMOTIL [Concomitant]
     Dates: start: 20091031
  20. VISINE [Concomitant]
     Dosage: DAILY DOSE: 4 QTTS
     Dates: start: 20091224
  21. SEPTRA [Concomitant]
     Dates: start: 20091228, end: 20100106

REACTIONS (2)
  - Blastocystis infection [Recovered/Resolved]
  - Colitis [Recovered/Resolved]
